FAERS Safety Report 5735571-6 (Version None)
Quarter: 2008Q2

REPORT INFORMATION
  Report Type: 
  Country: None (occurrence: None)
  Receive Date: 20080508
  Receipt Date: 20070711
  Transmission Date: 20081010
  Serious: Yes (Other)
  Sender: FDA-Public Use
  Company Number: 2007RR-08502

PATIENT
  Age: 35 Year
  Sex: Male

DRUGS (9)
  1. ABACAVIR [Suspect]
     Indication: HIV INFECTION
     Dates: end: 20030401
  2. ZIDOVUDINE [Suspect]
     Indication: HIV INFECTION
     Dates: end: 20030401
  3. LAMIVUDINE [Suspect]
     Indication: HIV INFECTION
     Dates: end: 20030401
  4. STAVUDINE [Suspect]
     Indication: HIV INFECTION
     Dates: end: 20030401
  5. GANCICLOVIR [Concomitant]
  6. EFAVIRENZ [Concomitant]
  7. DIDANOSINE [Concomitant]
  8. LOPINAVIR (LOPINAVIR) [Concomitant]
  9. RITONAVIR (RITONAVIR) [Concomitant]

REACTIONS (16)
  - ANAEMIA [None]
  - CACHEXIA [None]
  - CD4 LYMPHOCYTES DECREASED [None]
  - DEPRESSION [None]
  - DRUG HYPERSENSITIVITY [None]
  - DRUG INTERACTION [None]
  - DRUG TOXICITY [None]
  - FATIGUE [None]
  - HEADACHE [None]
  - HEPATITIS CHOLESTATIC [None]
  - HYPOAESTHESIA [None]
  - NAUSEA [None]
  - PANCREATITIS [None]
  - STEATORRHOEA [None]
  - TYPE 1 DIABETES MELLITUS [None]
  - VIRAL LOAD INCREASED [None]
